FAERS Safety Report 17364134 (Version 2)
Quarter: 2020Q1

REPORT INFORMATION
  Report Type: Report from Study
  Country: JP (occurrence: JP)
  Receive Date: 20200204
  Receipt Date: 20200210
  Transmission Date: 20200409
  Serious: Yes (Life-Threatening, Hospitalization, Other)
  Sender: FDA-Public Use
  Company Number: JP-BRISTOL-MYERS SQUIBB COMPANY-BMS-2020-006375

PATIENT
  Age: 12 Year
  Sex: Female
  Weight: 30.6 kg

DRUGS (4)
  1. DASATINIB. [Suspect]
     Active Substance: DASATINIB
     Indication: ACUTE LYMPHOCYTIC LEUKAEMIA
     Dosage: 70 MILLIGRAM, ON DAY 0 AND 1
     Route: 048
  2. METHOTREXATE. [Suspect]
     Active Substance: METHOTREXATE
     Indication: LEUKAEMIA RECURRENT
     Dosage: 5 GRAM PER SQUARE METRE
     Route: 041
  3. METHOTREXATE. [Suspect]
     Active Substance: METHOTREXATE
     Indication: ACUTE LYMPHOCYTIC LEUKAEMIA
     Dosage: 1 GRAM PER SQUARE METRE
     Route: 065
  4. DASATINIB. [Suspect]
     Active Substance: DASATINIB
     Indication: LEUKAEMIA RECURRENT
     Route: 065

REACTIONS (4)
  - Drug level increased [Recovered/Resolved]
  - Acute kidney injury [Unknown]
  - Drug clearance decreased [Recovered/Resolved]
  - Drug interaction [Unknown]
